FAERS Safety Report 24807103 (Version 1)
Quarter: 2025Q1

REPORT INFORMATION
  Report Type: Spontaneous
  Country: US (occurrence: US)
  Receive Date: 20250104
  Receipt Date: 20250104
  Transmission Date: 20250408
  Serious: Yes (Other)
  Sender: RIGEL PHARMACEUTICALS
  Company Number: US-RIGEL Pharmaceuticals, INC-20250100010

PATIENT
  Age: 7 Decade
  Sex: Female

DRUGS (1)
  1. GAVRETO [Suspect]
     Active Substance: PRALSETINIB
     Indication: Medullary thyroid cancer
     Dates: start: 201910

REACTIONS (10)
  - Gangrene [Recovered/Resolved]
  - Renal failure [None]
  - Hepatic failure [Unknown]
  - Leg amputation [Unknown]
  - Leg amputation [Unknown]
  - Pneumonia [Unknown]
  - Sepsis [Unknown]
  - Peripheral vascular disorder [Unknown]
  - Peripheral ischaemia [Unknown]
  - Impaired healing [Recovered/Resolved]

NARRATIVE: CASE EVENT DATE: 20240101
